FAERS Safety Report 9795912 (Version 1)
Quarter: 2014Q1

REPORT INFORMATION
  Report Type: Report from Study
  Country: KR (occurrence: KR)
  Receive Date: 20140103
  Receipt Date: 20140103
  Transmission Date: 20141002
  Serious: Yes (Hospitalization)
  Sender: FDA-Public Use
  Company Number: KR-JNJFOC-20131217189

PATIENT
  Age: 14 Year
  Sex: Male
  Weight: 54.7 kg

DRUGS (34)
  1. REMICADE [Suspect]
     Indication: CROHN^S DISEASE
     Route: 042
     Dates: start: 20120718
  2. REMICADE [Suspect]
     Indication: CROHN^S DISEASE
     Route: 042
     Dates: start: 20120828, end: 20121226
  3. REMICADE [Suspect]
     Indication: CROHN^S DISEASE
     Route: 042
     Dates: start: 20130220, end: 20130220
  4. RIFAXIMIN [Concomitant]
     Indication: CROHN^S DISEASE
     Route: 065
     Dates: start: 20120822, end: 20120827
  5. METRONIDAZOLE [Concomitant]
     Indication: CROHN^S DISEASE
     Route: 065
     Dates: start: 20120822, end: 20120827
  6. AZATHIOPRINE [Concomitant]
     Indication: CROHN^S DISEASE
     Route: 048
     Dates: start: 20091029, end: 20130219
  7. AZATHIOPRINE [Concomitant]
     Indication: CROHN^S DISEASE
     Route: 048
     Dates: start: 20130220, end: 20130311
  8. AZATHIOPRINE [Concomitant]
     Indication: CROHN^S DISEASE
     Route: 048
     Dates: start: 20090330, end: 20090614
  9. AZATHIOPRINE [Concomitant]
     Indication: CROHN^S DISEASE
     Route: 048
     Dates: start: 20090615, end: 20120828
  10. SALOFALK [Concomitant]
     Indication: CROHN^S DISEASE
     Route: 048
     Dates: start: 20081223, end: 20120113
  11. SALOFALK [Concomitant]
     Indication: CROHN^S DISEASE
     Route: 048
     Dates: start: 20120114
  12. NISOLONE [Concomitant]
     Indication: CROHN^S DISEASE
     Route: 048
     Dates: start: 20110608, end: 20110622
  13. NISOLONE [Concomitant]
     Indication: CROHN^S DISEASE
     Route: 048
     Dates: start: 20100122, end: 20100303
  14. NISOLONE [Concomitant]
     Indication: CROHN^S DISEASE
     Route: 048
     Dates: start: 20090116, end: 20090206
  15. SOLONDO [Concomitant]
     Indication: CROHN^S DISEASE
     Dosage: 2 TAB
     Route: 048
     Dates: start: 20121029, end: 20121105
  16. SOLONDO [Concomitant]
     Indication: CROHN^S DISEASE
     Dosage: 2 TAB
     Route: 048
     Dates: start: 20121106, end: 20121113
  17. SOLONDO [Concomitant]
     Indication: CROHN^S DISEASE
     Dosage: 1 TAB
     Route: 048
     Dates: start: 20121114, end: 20121121
  18. SOLONDO [Concomitant]
     Indication: CROHN^S DISEASE
     Dosage: 1 TAB
     Route: 048
     Dates: start: 20121122, end: 20121129
  19. SOLONDO [Concomitant]
     Indication: CROHN^S DISEASE
     Dosage: 1 TAB
     Route: 048
     Dates: start: 20130503, end: 20130517
  20. SOLONDO [Concomitant]
     Indication: CROHN^S DISEASE
     Dosage: 2 TAB
     Route: 048
     Dates: start: 20130425, end: 20130502
  21. SOLONDO [Concomitant]
     Indication: CROHN^S DISEASE
     Dosage: 1 TAB
     Route: 048
     Dates: start: 20130417, end: 20130424
  22. SOLONDO [Concomitant]
     Indication: CROHN^S DISEASE
     Dosage: 2 TAB
     Route: 048
     Dates: start: 20130401, end: 20130416
  23. SOLONDO [Concomitant]
     Indication: CROHN^S DISEASE
     Dosage: 2 TAB
     Route: 048
     Dates: start: 20130318, end: 20130331
  24. SALOFALK [Concomitant]
     Indication: CROHN^S DISEASE
     Route: 065
     Dates: start: 20130304, end: 20130311
  25. ENTOCORT ENEMA [Concomitant]
     Indication: CROHN^S DISEASE
     Route: 065
     Dates: start: 20130225
  26. BOLGRE [Concomitant]
     Indication: ANAEMIA
     Route: 048
     Dates: start: 20120718, end: 20120827
  27. FLASINYL [Concomitant]
     Indication: ANTIBIOTIC PROPHYLAXIS
     Dosage: 1 TAB
     Route: 048
     Dates: start: 20120718, end: 20120725
  28. FLASINYL [Concomitant]
     Indication: ANTIBIOTIC PROPHYLAXIS
     Dosage: 1 TAB
     Route: 048
     Dates: start: 20130311, end: 20130331
  29. FLASINYL [Concomitant]
     Indication: ANTIBIOTIC PROPHYLAXIS
     Dosage: 1 TAB
     Route: 048
     Dates: start: 20120822, end: 20120917
  30. NORMIX [Concomitant]
     Indication: ANTIBIOTIC PROPHYLAXIS
     Dosage: 1 TAB
     Route: 048
     Dates: start: 20120822, end: 20120831
  31. NORMIX [Concomitant]
     Indication: ANTIBIOTIC PROPHYLAXIS
     Dosage: 1 TAB
     Route: 048
     Dates: start: 20130417, end: 20130421
  32. NORMIX [Concomitant]
     Indication: ANTIBIOTIC PROPHYLAXIS
     Dosage: 1 TAB
     Route: 048
     Dates: start: 20130311, end: 20130318
  33. BIOFLOR [Concomitant]
     Indication: GASTROINTESTINAL DISORDER
     Route: 048
     Dates: start: 20120823, end: 20121225
  34. BIOFLOR [Concomitant]
     Indication: GASTROINTESTINAL DISORDER
     Route: 048
     Dates: start: 20121226

REACTIONS (1)
  - Gastrointestinal infection [Recovered/Resolved]
